FAERS Safety Report 7647635-0 (Version None)
Quarter: 2011Q3

REPORT INFORMATION
  Report Type: 
  Country: None (occurrence: None)
  Receive Date: 20110801
  Receipt Date: 20110801
  Transmission Date: 20111222
  Serious: Yes (Other)
  Sender: FDA-Public Use
  Company Number: None

PATIENT
  Age: 56 Year
  Sex: Female
  Weight: 50.802 kg

DRUGS (4)
  1. ZYRTEC [Concomitant]
     Route: 048
  2. PATANOL [Concomitant]
  3. LANSOPRAZOLE [Suspect]
     Indication: ULCER
     Dosage: 1 DAILY
     Dates: start: 20110628, end: 20110629
  4. LANSOPRAZOLE [Suspect]
     Indication: GASTROOESOPHAGEAL REFLUX DISEASE
     Dosage: 1 DAILY
     Dates: start: 20110628, end: 20110629

REACTIONS (3)
  - PRODUCT SUBSTITUTION ISSUE [None]
  - URINE OUTPUT DECREASED [None]
  - CHROMATURIA [None]
